FAERS Safety Report 5923714-0 (Version None)
Quarter: 2008Q4

REPORT INFORMATION
  Report Type: 
  Country: None (occurrence: None)
  Receive Date: 20081020
  Receipt Date: 20081010
  Transmission Date: 20090506
  Serious: Yes (Other)
  Sender: FDA-Public Use
  Company Number: B0502649A

PATIENT
  Sex: Female

DRUGS (3)
  1. PAROXETINE HCL [Suspect]
     Indication: DRUG USE FOR UNKNOWN INDICATION
     Route: 065
     Dates: start: 19941107
  2. DOTHIEPIN [Concomitant]
     Dates: start: 19990101
  3. LEVOTHYROXINE SODIUM [Concomitant]

REACTIONS (14)
  - AGGRESSION [None]
  - ANGER [None]
  - CONFUSIONAL STATE [None]
  - DRUG WITHDRAWAL SYNDROME [None]
  - EMOTIONAL DISTRESS [None]
  - FEAR [None]
  - MENTAL DISORDER [None]
  - NAUSEA [None]
  - PALPITATIONS [None]
  - PARANOIA [None]
  - POOR QUALITY SLEEP [None]
  - STRESS [None]
  - SUICIDAL IDEATION [None]
  - TEARFULNESS [None]
